FAERS Safety Report 6346451-X (Version None)
Quarter: 2009Q3

REPORT INFORMATION
  Report Type: 
  Country: None (occurrence: None)
  Receive Date: 20090821
  Receipt Date: 20090630
  Transmission Date: 20100115
  Serious: No
  Sender: FDA-Public Use
  Company Number: 8048485

PATIENT
  Age: 67 Year
  Sex: Female
  Weight: 86.1 kg

DRUGS (15)
  1. CIMZIA [Suspect]
     Indication: CROHN'S DISEASE
     Dosage: 400 MG SC
     Route: 058
     Dates: start: 20090617
  2. NEXIUM [Concomitant]
  3. FOLIC ACID [Concomitant]
  4. LIPITOR [Concomitant]
  5. CLONIDINE [Concomitant]
  6. LISINOPRIL [Concomitant]
  7. CYMBALTA [Concomitant]
  8. DIAZEPAM [Concomitant]
  9. VITAMIN B-12 [Concomitant]
  10. GLUCOSAMINE [Concomitant]
  11. CALTRATE + D [Concomitant]
  12. ASCORBIC ACID [Concomitant]
  13. FLAX SEED [Concomitant]
  14. PRIMROSE [Concomitant]
  15. SLOW-FE [Concomitant]

REACTIONS (1)
  - INJECTION SITE RASH [None]
